FAERS Safety Report 9595646 (Version 2)
Quarter: 2013Q4

REPORT INFORMATION
  Report Type: Report from Study
  Country: JP (occurrence: JP)
  Receive Date: 20131004
  Receipt Date: 20131004
  Transmission Date: 20140711
  Serious: Yes (Death)
  Sender: FDA-Public Use
  Company Number: JP-TAKEDA-TCI2013A02939

PATIENT
  Age: 76 Year
  Sex: Male
  Weight: 59 kg

DRUGS (14)
  1. TAKEPRON OD TABLETS 15 [Suspect]
     Indication: PROPHYLAXIS AGAINST GASTROINTESTINAL ULCER
     Route: 048
     Dates: start: 20111222, end: 20121019
  2. LOXOPROFEN SODIUM [Concomitant]
     Indication: CANCER PAIN
     Route: 048
     Dates: start: 20111222
  3. MUCOSTA [Concomitant]
     Route: 048
     Dates: start: 20111222
  4. XELODA [Concomitant]
     Route: 048
     Dates: start: 20120201
  5. CISPLATIN [Concomitant]
     Route: 042
     Dates: start: 20120201
  6. HERCEPTIN [Concomitant]
     Route: 042
     Dates: start: 20120201
  7. EMEND [Concomitant]
     Route: 048
     Dates: start: 20120201
  8. PROEMEND [Concomitant]
     Route: 042
     Dates: start: 20120229
  9. LASIX [Concomitant]
     Indication: MALIGNANT ASCITES
     Route: 048
     Dates: start: 20120926
  10. LASIX [Concomitant]
     Indication: MALIGNANT ASCITES
  11. ALDACTONE A [Concomitant]
     Indication: MALIGNANT ASCITES
     Route: 048
     Dates: start: 20120926
  12. ALDACTONE A [Concomitant]
     Indication: MALIGNANT ASCITES
  13. AMLODIN [Concomitant]
     Indication: HYPERTENSION
     Route: 048
  14. AMLODIN [Concomitant]
     Route: 048

REACTIONS (2)
  - General physical health deterioration [Fatal]
  - General physical health deterioration [Fatal]
